FAERS Safety Report 24663168 (Version 1)
Quarter: 2024Q4

REPORT INFORMATION
  Report Type: Report from Study
  Country: US (occurrence: US)
  Receive Date: 20241126
  Receipt Date: 20241126
  Transmission Date: 20250114
  Serious: Yes (Other)
  Sender: ABBVIE
  Company Number: US-ABBVIE-6010500

PATIENT
  Age: 67 Year
  Sex: Female

DRUGS (4)
  1. UBRELVY [Suspect]
     Active Substance: UBROGEPANT
     Indication: Migraine
     Dosage: TIME INTERVAL: AS NECESSARY: TAKE ONE TABLET BY MOUTH AS NEEDED. IF NEEDED, 2ND DOSE MAY BE TAKEN...
     Route: 048
     Dates: start: 2022
  2. LASIX [Concomitant]
     Active Substance: FUROSEMIDE
     Indication: Arthropathy
     Dates: start: 20241117
  3. SPIRONOLACTONE [Concomitant]
     Active Substance: SPIRONOLACTONE
     Indication: Product used for unknown indication
     Dosage: 1 IN THE MORNING ON AT 8PM EVENING
     Dates: start: 20241117
  4. MORPHINE [Suspect]
     Active Substance: MORPHINE
     Indication: Product used for unknown indication
     Route: 065
     Dates: start: 20220101

REACTIONS (5)
  - Hysterectomy [Unknown]
  - Migraine [Not Recovered/Not Resolved]
  - Somnolence [Unknown]
  - Illness [Unknown]
  - Stress [Unknown]
